FAERS Safety Report 20868386 (Version 1)
Quarter: 2022Q2

REPORT INFORMATION
  Report Type: Spontaneous
  Country: US (occurrence: None)
  Receive Date: 20220524
  Receipt Date: 20220524
  Transmission Date: 20220720
  Serious: No
  Sender: FDA-Public Use
  Company Number: None

PATIENT
  Sex: Female

DRUGS (1)
  1. LENALIDOMIDE [Suspect]
     Active Substance: LENALIDOMIDE
     Indication: Plasma cell myeloma
     Dosage: 5MG DAILY ORAL
     Route: 048
     Dates: start: 20220228

REACTIONS (7)
  - Urticaria [None]
  - Pruritus [None]
  - Swelling face [None]
  - Lip swelling [None]
  - Peripheral swelling [None]
  - Joint swelling [None]
  - Joint swelling [None]
